FAERS Safety Report 14819474 (Version 2)
Quarter: 2018Q2

REPORT INFORMATION
  Report Type: Report from Study
  Country: CA (occurrence: CA)
  Receive Date: 20180427
  Receipt Date: 20180508
  Transmission Date: 20180711
  Serious: Yes (Other)
  Sender: FDA-Public Use
  Company Number: CA-AMGEN-CANSP2018015900

PATIENT
  Age: 56 Year
  Sex: Female
  Weight: 65.76 kg

DRUGS (1)
  1. PROLIA [Suspect]
     Active Substance: DENOSUMAB
     Indication: PRODUCT USED FOR UNKNOWN INDICATION
     Dosage: 60 MG/ML, Q6MO
     Route: 065
     Dates: start: 20171128

REACTIONS (13)
  - Ill-defined disorder [Unknown]
  - Vitreous floaters [Not Recovered/Not Resolved]
  - Loss of personal independence in daily activities [Recovering/Resolving]
  - Muscle spasms [Unknown]
  - Fatigue [Recovering/Resolving]
  - Pruritus generalised [Not Recovered/Not Resolved]
  - Musculoskeletal stiffness [Not Recovered/Not Resolved]
  - Joint stiffness [Recovering/Resolving]
  - Night sweats [Not Recovered/Not Resolved]
  - Myalgia [Recovering/Resolving]
  - Arthralgia [Unknown]
  - Groin pain [Not Recovered/Not Resolved]
  - Muscular weakness [Recovering/Resolving]

NARRATIVE: CASE EVENT DATE: 201712
